FAERS Safety Report 9486679 (Version 1)
Quarter: 2013Q3

REPORT INFORMATION
  Report Type: Spontaneous
  Country: US (occurrence: None)
  Receive Date: 20130827
  Receipt Date: 20130827
  Transmission Date: 20140515
  Serious: Yes (Other)
  Sender: FDA-Public Use
  Company Number: None

PATIENT
  Age: 76 None
  Sex: Male
  Weight: 74.84 kg

DRUGS (5)
  1. ELIGARD [Suspect]
     Dates: start: 20061031, end: 20071121
  2. LIPITOR [Concomitant]
  3. FLOMAX [Concomitant]
  4. MULTI DAILY VITAMIN [Concomitant]
  5. CALCIUM [Concomitant]

REACTIONS (2)
  - Hot flush [None]
  - Hyperhidrosis [None]
